FAERS Safety Report 21259086 (Version 1)
Quarter: 2022Q3

REPORT INFORMATION
  Report Type: Spontaneous
  Country: US (occurrence: US)
  Receive Date: 20220826
  Receipt Date: 20220826
  Transmission Date: 20221026
  Serious: No
  Sender: FDA-Public Use
  Company Number: US-Vifor (International) Inc.-VIT-2022-05757

PATIENT
  Age: 65 Year
  Sex: Male

DRUGS (6)
  1. MIRCERA [Suspect]
     Active Substance: METHOXY POLYETHYLENE GLYCOL-EPOETIN BETA
     Indication: Product used for unknown indication
  2. MIRCERA [Suspect]
     Active Substance: METHOXY POLYETHYLENE GLYCOL-EPOETIN BETA
     Dosage: DOSE NUMBER: 37 AND DOSE CATEGORY: 21-30 PLUS
     Dates: start: 20220730, end: 20220730
  3. VENOFER [Suspect]
     Active Substance: IRON SUCROSE
     Indication: Product used for unknown indication
     Route: 042
  4. SENSIPAR [Concomitant]
     Active Substance: CINACALCET HYDROCHLORIDE
  5. DIPHENHYDRAMINE [Concomitant]
     Active Substance: DIPHENHYDRAMINE
  6. CALCITRIOL [Concomitant]
     Active Substance: CALCITRIOL
     Route: 048

REACTIONS (3)
  - Drug hypersensitivity [Recovered/Resolved]
  - Vomiting [Recovered/Resolved]
  - Nausea [Recovered/Resolved]

NARRATIVE: CASE EVENT DATE: 20220730
